FAERS Safety Report 5331062-5 (Version None)
Quarter: 2007Q2

REPORT INFORMATION
  Report Type: 
  Country: None (occurrence: None)
  Receive Date: 20070522
  Receipt Date: 20070511
  Transmission Date: 20071010
  Serious: Yes (Hospitalization)
  Sender: FDA-Public Use
  Company Number: B0471102A

PATIENT
  Age: 1 Day
  Sex: Female
  Weight: 2.5 kg

DRUGS (12)
  1. FLOLAN [Suspect]
     Route: 042
     Dates: start: 20070423
  2. DOBUTAMINE HCL [Suspect]
     Route: 065
     Dates: start: 20070423
  3. HYDROCORTISONE [Suspect]
     Route: 065
     Dates: start: 20070423
  4. PROSTIN VR PEDIATRIC [Suspect]
     Route: 065
     Dates: start: 20070423
  5. CLAMOXYL [Concomitant]
     Dates: start: 20070423
  6. CLAFORAN [Concomitant]
     Dates: start: 20070423
  7. AMIKLIN [Concomitant]
     Dates: start: 20070423
  8. VANCOMYCIN [Concomitant]
     Dates: start: 20070423
  9. PROTOXYDE AZOTE [Concomitant]
     Dates: start: 20070423
  10. NORADRENALINE [Concomitant]
     Dates: start: 20070423
  11. SUFENTA [Concomitant]
     Dates: start: 20070423
  12. NORCURON [Concomitant]
     Dates: start: 20070423

REACTIONS (1)
  - HYPOKALAEMIA [None]
